FAERS Safety Report 10563395 (Version 1)
Quarter: 2014Q4

REPORT INFORMATION
  Report Type: Spontaneous
  Country: US (occurrence: US)
  Receive Date: 20141104
  Receipt Date: 20141104
  Transmission Date: 20150529
  Serious: No
  Sender: FDA-Public Use
  Company Number: US-PFIZER INC-2014301481

PATIENT
  Sex: Female

DRUGS (1)
  1. PROTONIX [Suspect]
     Active Substance: PANTOPRAZOLE SODIUM
     Dosage: 40 MG, ONCE A DAY

REACTIONS (6)
  - Gastritis [Unknown]
  - Pain [Unknown]
  - Osteopenia [Unknown]
  - Constipation [Unknown]
  - Arthralgia [Unknown]
  - Vomiting [Unknown]
